FAERS Safety Report 7050932-3 (Version None)
Quarter: 2010Q4

REPORT INFORMATION
  Report Type: 
  Country: None (occurrence: None)
  Receive Date: 20101019
  Receipt Date: 20100517
  Transmission Date: 20110411
  Serious: Yes (Other)
  Sender: FDA-Public Use
  Company Number: US-ASTRAZENECA-2008UW07300

PATIENT
  Sex: Female

DRUGS (14)
  1. SEROQUEL [Suspect]
     Route: 048
     Dates: start: 20080218
  2. SYNTHROID [Concomitant]
     Dosage: 50-88 MCG
     Dates: start: 20040506
  3. SIMVASTATIN [Concomitant]
     Dates: start: 20080218
  4. DALMANE [Concomitant]
     Dates: start: 20080218
  5. ASPIRIN [Concomitant]
     Dates: start: 20080218
  6. CENTRUM [Concomitant]
     Dates: start: 20080218
  7. METOPROLOL [Concomitant]
     Dates: start: 20080218
  8. PREVACID [Concomitant]
     Dates: start: 20080218
  9. ISOSORBIDE [Concomitant]
     Dates: start: 20080218
  10. CINNAMON [Concomitant]
     Dates: start: 20080218
  11. MAG-OX [Concomitant]
     Dates: start: 20080218
  12. CLIMARA [Concomitant]
     Dates: start: 20080218
  13. ALTACE [Concomitant]
     Dates: start: 20040506
  14. ESTROGEN [Concomitant]

REACTIONS (3)
  - DIABETIC NEPHROPATHY [None]
  - DIABETIC NEUROPATHY [None]
  - TYPE 2 DIABETES MELLITUS [None]
